FAERS Safety Report 9851682 (Version 3)
Quarter: 2014Q2

REPORT INFORMATION
  Report Type: Spontaneous
  Country: JP (occurrence: JP)
  Receive Date: 20140129
  Receipt Date: 20140403
  Transmission Date: 20141212
  Serious: Yes (Life-Threatening, Hospitalization)
  Sender: FDA-Public Use
  Company Number: JP-AMGEN-JPNSP2014005542

PATIENT
  Age: 64 Year
  Sex: Male
  Weight: 51 kg

DRUGS (18)
  1. VECTIBIX [Suspect]
     Indication: METASTASES TO LIVER
     Dosage: 300 MG, Q2WK
     Route: 041
     Dates: start: 20121005, end: 20130508
  2. VECTIBIX [Suspect]
     Dosage: UNK UNK, Q2WK
     Route: 041
     Dates: start: 20130522, end: 20130904
  3. VECTIBIX [Suspect]
     Dosage: UNK UNK, Q2WK
     Route: 041
     Dates: start: 20131016, end: 20131211
  4. ELPLAT [Suspect]
     Indication: METASTASES TO LIVER
     Dosage: 75 MG, Q2WK
     Route: 041
     Dates: start: 20130313, end: 20130327
  5. ELPLAT [Suspect]
     Dosage: UNK UNK, Q2WK
     Route: 041
     Dates: start: 20130522, end: 20130619
  6. ELPLAT [Suspect]
     Dosage: UNK UNK, Q2WK
     Route: 041
     Dates: start: 20130725, end: 20131211
  7. CALCIUM LEVOFOLINATE [Concomitant]
     Indication: METASTASES TO LIVER
     Dosage: 300 MG, Q2WK
     Route: 041
     Dates: start: 20130313, end: 20130327
  8. CALCIUM LEVOFOLINATE [Concomitant]
     Dosage: UNK UNK, Q2WK
     Route: 041
     Dates: start: 20130522, end: 20130619
  9. CALCIUM LEVOFOLINATE [Concomitant]
     Dosage: UNK
     Route: 041
     Dates: start: 20130725, end: 20131211
  10. CALCIUM LEVOFOLINATE [Concomitant]
     Dosage: UNK
     Route: 041
     Dates: start: 20140212
  11. 5 FU [Concomitant]
     Indication: METASTASES TO LIVER
     Dosage: UNK UNK, Q2WK
     Route: 042
     Dates: start: 20130313, end: 20130327
  12. 5 FU [Concomitant]
     Dosage: UNK UNK, Q2WK
     Route: 042
     Dates: start: 20130522, end: 20130619
  13. 5 FU [Concomitant]
     Dosage: UNK
     Route: 042
     Dates: start: 20130725, end: 20131211
  14. 5 FU [Concomitant]
     Dosage: UNK
     Route: 042
     Dates: start: 20140212
  15. DECADRON                           /00016002/ [Concomitant]
     Indication: METASTASES TO LIVER
     Dosage: 13.2 MG, Q2WK
     Route: 041
     Dates: start: 20130313
  16. GRANISETRON HYDROCHLORIDE [Concomitant]
     Indication: METASTASES TO LIVER
     Dosage: 3 MG, Q2WK
     Route: 041
     Dates: start: 20130313
  17. EXCEMIDE [Concomitant]
     Indication: EPILEPSY
     Dosage: UNK
     Route: 048
  18. RIVOTRIL [Concomitant]
     Indication: EPILEPSY
     Dosage: UNK
     Route: 048

REACTIONS (6)
  - Interstitial lung disease [Recovering/Resolving]
  - Pancreatitis acute [Recovering/Resolving]
  - Hypoaesthesia [Unknown]
  - Stomatitis [Unknown]
  - Rash [Unknown]
  - Weight decreased [Unknown]
